FAERS Safety Report 23876237 (Version 1)
Quarter: 2024Q2

REPORT INFORMATION
  Report Type: Spontaneous
  Country: JP (occurrence: JP)
  Receive Date: 20240520
  Receipt Date: 20240520
  Transmission Date: 20240716
  Serious: Yes (Other)
  Sender: FDA-Public Use
  Company Number: JP-JNJFOC-20240535532

PATIENT
  Age: 6 Decade

DRUGS (1)
  1. OPSUMIT [Suspect]
     Active Substance: MACITENTAN
     Indication: Collagen disorder
     Route: 048

REACTIONS (2)
  - Pulmonary congestion [Recovered/Resolved]
  - Off label use [Unknown]
